FAERS Safety Report 18667837 (Version 1)
Quarter: 2020Q4

REPORT INFORMATION
  Report Type: Report from Study
  Country: IT (occurrence: IT)
  Receive Date: 20201228
  Receipt Date: 20201228
  Transmission Date: 20210114
  Serious: Yes (Hospitalization)
  Sender: FDA-Public Use
  Company Number: IT-ACCORD-212281

PATIENT
  Age: 86 Year
  Sex: Female

DRUGS (3)
  1. RAMIPRIL. [Suspect]
     Active Substance: RAMIPRIL
     Indication: HYPERTENSION
     Route: 048
  2. LUVION (CANRENOIC ACID) [Interacting]
     Active Substance: CANRENOIC ACID
     Indication: HYPERTENSION
     Dosage: STRENGTH: 50 MG
     Route: 048
  3. ELIQUIS [Concomitant]
     Active Substance: APIXABAN
     Indication: ATRIAL FIBRILLATION
     Route: 048

REACTIONS (4)
  - Drug interaction [Unknown]
  - Asthenia [Recovering/Resolving]
  - Hyperkalaemia [Recovering/Resolving]
  - Dyspnoea [Recovering/Resolving]

NARRATIVE: CASE EVENT DATE: 20201125
